FAERS Safety Report 9995645 (Version 1)
Quarter: 2014Q1

REPORT INFORMATION
  Report Type: Spontaneous
  Country: BR (occurrence: BR)
  Receive Date: 20140311
  Receipt Date: 20140311
  Transmission Date: 20141002
  Serious: Yes (Hospitalization)
  Sender: FDA-Public Use
  Company Number: BR-SA-2014SA026045

PATIENT
  Age: 82 Year
  Sex: Male
  Weight: 71 kg

DRUGS (11)
  1. TAXOTERE [Suspect]
     Indication: PROSTATE CANCER
     Dosage: FREQUENCY-EVERY 21 DAY
     Route: 065
     Dates: start: 20140102
  2. TENORMIN [Concomitant]
  3. METFORMIN [Concomitant]
  4. ACETYLSALICYLIC ACID [Concomitant]
  5. SIMVASTATIN [Concomitant]
  6. LOSARTAN [Concomitant]
  7. AMLODIPINE [Concomitant]
  8. PREDNISONE [Concomitant]
  9. OMEPRAZOLE [Concomitant]
  10. OSCAL D [Concomitant]
  11. DECADRON [Concomitant]

REACTIONS (4)
  - Atrial fibrillation [Recovered/Resolved]
  - Electrolyte imbalance [Recovered/Resolved]
  - Febrile neutropenia [Recovered/Resolved]
  - Pyrexia [Recovered/Resolved]
